FAERS Safety Report 9180830 (Version 1)
Quarter: 2013Q1

REPORT INFORMATION
  Report Type: Spontaneous
  Country: US (occurrence: US)
  Receive Date: 20130322
  Receipt Date: 20130322
  Transmission Date: 20140127
  Serious: Yes (Death, Other)
  Sender: FDA-Public Use
  Company Number: US-BAYER-2013-033240

PATIENT
  Age: 58 Year
  Sex: Female

DRUGS (1)
  1. TRASYLOL [Suspect]
     Indication: CARDIAC OPERATION
     Dosage: UNK
     Dates: start: 200605

REACTIONS (6)
  - Cardiac arrest [Fatal]
  - Nephropathy [None]
  - Renal failure [None]
  - Renal injury [None]
  - Injury [None]
  - Anhedonia [None]
